FAERS Safety Report 15015347 (Version 1)
Quarter: 2018Q2

REPORT INFORMATION
  Report Type: Spontaneous
  Country: US (occurrence: US)
  Receive Date: 20180615
  Receipt Date: 20180615
  Transmission Date: 20180711
  Serious: No
  Sender: FDA-Public Use
  Company Number: US-GLAXOSMITHKLINE-US2018101979

PATIENT
  Sex: Female

DRUGS (1)
  1. VOLTAREN [Suspect]
     Active Substance: DICLOFENAC SODIUM
     Indication: PAIN
     Dosage: UNK, BID

REACTIONS (5)
  - Dry skin [Unknown]
  - Drug hypersensitivity [Unknown]
  - Pruritus [Unknown]
  - Skin haemorrhage [Unknown]
  - Inappropriate schedule of drug administration [Unknown]
